FAERS Safety Report 22224605 (Version 2)
Quarter: 2023Q2

REPORT INFORMATION
  Report Type: Spontaneous
  Country: BE (occurrence: BE)
  Receive Date: 20230418
  Receipt Date: 20230502
  Transmission Date: 20230722
  Serious: Yes (Other)
  Sender: FDA-Public Use
  Company Number: BE-ELI_LILLY_AND_COMPANY-BE202304006905

PATIENT

DRUGS (2)
  1. TALTZ [Suspect]
     Active Substance: IXEKIZUMAB
     Indication: Product used for unknown indication
     Dosage: UNK, UNKNOWN
     Route: 064
  2. TALTZ [Suspect]
     Active Substance: IXEKIZUMAB
     Indication: Product used for unknown indication
     Dosage: UNK, UNKNOWN
     Route: 064

REACTIONS (2)
  - Neonatal pneumothorax [Recovered/Resolved]
  - Foetal exposure during pregnancy [Recovered/Resolved]
